FAERS Safety Report 14739629 (Version 2)
Quarter: 2018Q2

REPORT INFORMATION
  Report Type: Spontaneous
  Country: US (occurrence: US)
  Receive Date: 20180410
  Receipt Date: 20180523
  Transmission Date: 20180711
  Serious: No
  Sender: FDA-Public Use
  Company Number: PHEH2018US013599

PATIENT
  Age: 75 Year
  Sex: Female

DRUGS (3)
  1. LENVIMA [Suspect]
     Active Substance: LENVATINIB
     Indication: RENAL CELL CARCINOMA
     Dosage: 10 MG, QD
     Route: 048
     Dates: start: 20171116
  2. AFINITOR [Suspect]
     Active Substance: EVEROLIMUS
     Indication: RENAL CANCER
     Route: 065
  3. LENVIMA [Suspect]
     Active Substance: LENVATINIB
     Indication: RENAL CANCER

REACTIONS (4)
  - Diarrhoea [Recovered/Resolved]
  - Fatigue [Recovering/Resolving]
  - Peripheral swelling [Unknown]
  - Dry mouth [Recovered/Resolved]

NARRATIVE: CASE EVENT DATE: 20180305
